FAERS Safety Report 14630256 (Version 1)
Quarter: 2018Q1

REPORT INFORMATION
  Report Type: Spontaneous
  Country: US (occurrence: US)
  Receive Date: 20180313
  Receipt Date: 20180313
  Transmission Date: 20180509
  Serious: No
  Sender: FDA-Public Use
  Company Number: None

PATIENT
  Age: 27 Year
  Sex: Female
  Weight: 58.97 kg

DRUGS (4)
  1. NATURES BOUNTY ACIDOPHOLIS [Concomitant]
  2. PARAGARD T 380A [Suspect]
     Active Substance: COPPER
     Dates: start: 20170827
  3. NATURES WAY30 BILLION CULTURES [Concomitant]
  4. TRUS NATURE CRANBERRY PILLS [Concomitant]

REACTIONS (5)
  - Device issue [None]
  - Fungal infection [None]
  - Skin odour abnormal [None]
  - Disease recurrence [None]
  - Drug ineffective [None]
